FAERS Safety Report 25575092 (Version 4)
Quarter: 2025Q4

REPORT INFORMATION
  Report Type: Report from Study
  Country: BR (occurrence: BR)
  Receive Date: 20250718
  Receipt Date: 20251225
  Transmission Date: 20260117
  Serious: Yes (Other)
  Sender: TAKEDA
  Company Number: BR-TAKEDA-2025TUS060288

PATIENT
  Age: 48 Year
  Sex: Female

DRUGS (7)
  1. VEDOLIZUMAB [Suspect]
     Active Substance: VEDOLIZUMAB
     Indication: Colitis ulcerative
     Dosage: 300 MILLIGRAM, Q4WEEKS
     Dates: start: 20241210
  2. VEDOLIZUMAB [Suspect]
     Active Substance: VEDOLIZUMAB
     Dosage: 300 MILLIGRAM, Q4WEEKS
     Dates: start: 20250123
  3. PREDNISONE [Suspect]
     Active Substance: PREDNISONE
     Indication: Product used for unknown indication
     Dosage: 40 MILLIGRAM
  4. HISTAMINE [Suspect]
     Active Substance: HISTAMINE
     Indication: Product used for unknown indication
     Dosage: UNK
  5. RIVOTRIL [Concomitant]
     Active Substance: CLONAZEPAM
     Dosage: UNK
  6. TRAZODONE HYDROCHLORIDE [Concomitant]
     Active Substance: TRAZODONE HYDROCHLORIDE
     Dosage: 50 MILLIGRAM
  7. BUDESONIDE [Concomitant]
     Active Substance: BUDESONIDE
     Dosage: UNK UNK, TID

REACTIONS (18)
  - Haematochezia [Recovering/Resolving]
  - Rhinitis allergic [Unknown]
  - Somnolence [Unknown]
  - Stress [Unknown]
  - Diarrhoea [Unknown]
  - Rectal tenesmus [Recovering/Resolving]
  - Weight decreased [Recovering/Resolving]
  - Menstruation delayed [Unknown]
  - Mucous stools [Recovering/Resolving]
  - Abnormal faeces [Recovering/Resolving]
  - Taste disorder [Recovering/Resolving]
  - Inappropriate schedule of product administration [Unknown]
  - Product availability issue [Unknown]
  - Product dose omission issue [Unknown]
  - Abdominal pain [Recovering/Resolving]
  - Chest pain [Recovering/Resolving]
  - Chest discomfort [Recovering/Resolving]
  - Flatulence [Recovering/Resolving]

NARRATIVE: CASE EVENT DATE: 20250515
